FAERS Safety Report 9363415 (Version 2)
Quarter: 2013Q2

REPORT INFORMATION
  Report Type: Spontaneous
  Country: NL (occurrence: None)
  Receive Date: 20130620
  Receipt Date: 20130628
  Transmission Date: 20140414
  Serious: Yes (Death)
  Sender: FDA-Public Use
  Company Number: SYM-2013-04933

PATIENT
  Age: 61 Year
  Sex: Male

DRUGS (4)
  1. FLUOROURACIL [Suspect]
     Indication: COLORECTAL CANCER METASTATIC
     Dosage: 800 MG, EVERY OTHER WEEK, INTRAVENOUS BOLUS
     Route: 040
     Dates: start: 20130516, end: 20130516
  2. AFLIBERCEPT [Suspect]
     Indication: COLORECTAL CANCER METASTATIC
     Dosage: 405 MG, EVERY OTHER WEEK, INTRAVENOUS
     Route: 042
     Dates: start: 20130516, end: 20130516
  3. IRINOTECAN [Suspect]
     Indication: COLORECTAL CANCER METASTATIC
     Dosage: 360 MG, EVERY OTHER WEEK, INTRAVENOUS
     Route: 042
     Dates: start: 20130516, end: 20130516
  4. LEUCOVORIN [Suspect]
     Indication: COLORECTAL CANCER METASTATIC
     Dosage: 800 MG, EVERY OTHER WEEK, INTRAVENOUS
     Route: 042
     Dates: start: 20130516, end: 20130516

REACTIONS (2)
  - Pulmonary haemorrhage [None]
  - Dysphonia [None]
